FAERS Safety Report 23464866 (Version 1)
Quarter: 2024Q1

REPORT INFORMATION
  Report Type: Spontaneous
  Country: US (occurrence: US)
  Receive Date: 20240201
  Receipt Date: 20240201
  Transmission Date: 20240410
  Serious: No
  Sender: FDA-Public Use
  Company Number: US-JNJFOC-20240124323

PATIENT
  Age: 63 Year
  Sex: Female
  Weight: 59.02 kg

DRUGS (4)
  1. TYLENOL [Suspect]
     Active Substance: ACETAMINOPHEN
     Indication: Headache
     Route: 065
     Dates: start: 2023
  2. UPTRAVI [Concomitant]
     Active Substance: SELEXIPAG
     Indication: Pulmonary hypertension
     Dosage: UPTRAVI DOSE 600MCG IN AM AND 800MCG IN PM
     Route: 048
     Dates: start: 20231114
  3. UPTRAVI [Concomitant]
     Active Substance: SELEXIPAG
     Dosage: UPTRAVI DOSE 600MCG IN AM AND 800MCG IN PM
     Route: 048
     Dates: start: 20231114
  4. IMODIUM [Concomitant]
     Active Substance: LOPERAMIDE HYDROCHLORIDE
     Indication: Diarrhoea
     Route: 065
     Dates: start: 2023

REACTIONS (1)
  - Drug ineffective [Unknown]

NARRATIVE: CASE EVENT DATE: 20230101
